FAERS Safety Report 25795739 (Version 1)
Quarter: 2025Q3

REPORT INFORMATION
  Report Type: Spontaneous
  Country: US (occurrence: US)
  Receive Date: 20250912
  Receipt Date: 20250912
  Transmission Date: 20251020
  Serious: Yes (Hospitalization, Other)
  Sender: ALEXION PHARMACEUTICALS
  Company Number: US-AstraZeneca-CH-00948415A

PATIENT
  Sex: Female

DRUGS (2)
  1. CALQUENCE [Suspect]
     Active Substance: ACALABRUTINIB
     Indication: Waldenstrom^s macroglobulinaemia
     Dosage: 100 MILLIGRAM, QD
     Route: 065
  2. CALQUENCE [Suspect]
     Active Substance: ACALABRUTINIB
     Dosage: 200 MILLIGRAM, QD
     Route: 065

REACTIONS (8)
  - Neuropathy peripheral [Unknown]
  - Paralysis [Unknown]
  - Condition aggravated [Unknown]
  - Disease recurrence [Unknown]
  - Blood immunoglobulin M abnormal [Unknown]
  - Off label use [Unknown]
  - Product prescribing issue [Unknown]
  - Drug ineffective [Unknown]
